FAERS Safety Report 5117493-7 (Version None)
Quarter: 2006Q3

REPORT INFORMATION
  Report Type: 
  Country: None (occurrence: None)
  Receive Date: 20060926
  Receipt Date: 20060911
  Transmission Date: 20061208
  Serious: Yes (Other)
  Sender: FDA-Public Use
  Company Number: US200609003151

PATIENT
  Age: 57 Year
  Sex: Male

DRUGS (2)
  1. FORTEO [Suspect]
     Dosage: 20 UG
     Dates: start: 20050601, end: 20060901
  2. FORTEO [Concomitant]

REACTIONS (1)
  - MYELODYSPLASTIC SYNDROME [None]
